FAERS Safety Report 8531641-8 (Version None)
Quarter: 2012Q3

REPORT INFORMATION
  Report Type: 
  Country: None (occurrence: None)
  Receive Date: 20120723
  Receipt Date: 20120718
  Transmission Date: 20120928
  Serious: Yes (Death)
  Sender: FDA-Public Use
  Company Number: US-CELGENEUS-163-21880-12072083

PATIENT
  Sex: Male

DRUGS (2)
  1. REVLIMID [Suspect]
     Dosage: 15 MILLIGRAM
     Dates: start: 20120301
  2. REVLIMID [Suspect]
     Dosage: 5 MILLIGRAM
     Dates: start: 20120401

REACTIONS (2)
  - ALLERGIC TRANSFUSION REACTION [None]
  - DEATH [None]
